FAERS Safety Report 7180484-9 (Version None)
Quarter: 2010Q4

REPORT INFORMATION
  Report Type: 
  Country: None (occurrence: None)
  Receive Date: 20101221
  Receipt Date: 20101208
  Transmission Date: 20110411
  Serious: Yes (Other)
  Sender: FDA-Public Use
  Company Number: JP-CELGENEUS-087-21880-10121090

PATIENT
  Sex: Female

DRUGS (15)
  1. REVLIMID [Suspect]
     Indication: MULTIPLE MYELOMA
     Route: 048
     Dates: start: 20100831, end: 20100906
  2. DECADRON [Suspect]
     Indication: MULTIPLE MYELOMA
     Route: 048
     Dates: start: 20100831, end: 20100903
  3. BIOFERMIN [Concomitant]
     Indication: PROPHYLAXIS
     Route: 048
     Dates: start: 20100831, end: 20100914
  4. AMLODIN [Concomitant]
     Indication: HYPERTENSION
     Route: 048
     Dates: start: 20100831, end: 20100914
  5. MICARDIS [Concomitant]
     Indication: HYPERTENSION
     Route: 048
     Dates: start: 20100831, end: 20100914
  6. REBAMIPIDE [Concomitant]
     Indication: PROPHYLAXIS
     Route: 048
     Dates: start: 20100831, end: 20100914
  7. MAGNESIUM OXIDE [Concomitant]
     Indication: PROPHYLAXIS
     Route: 048
     Dates: start: 20100831, end: 20100914
  8. TAKEPRON [Concomitant]
     Indication: PROPHYLAXIS
     Route: 048
     Dates: start: 20100831, end: 20100914
  9. BROTIZOLAM [Concomitant]
     Indication: INSOMNIA
     Route: 048
     Dates: start: 20100831, end: 20100914
  10. BROTIZOLAM [Concomitant]
  11. CORTRIL [Concomitant]
     Indication: PROPHYLAXIS
     Route: 048
     Dates: start: 20100831, end: 20100914
  12. KLARICID [Concomitant]
     Indication: PROPHYLAXIS
     Route: 048
     Dates: start: 20100831, end: 20100914
  13. SLOW-K [Concomitant]
     Indication: INSOMNIA
     Route: 048
     Dates: start: 20100831, end: 20100914
  14. SLOW-K [Concomitant]
  15. ASPIRIN [Concomitant]
     Indication: PROPHYLAXIS
     Route: 048
     Dates: start: 20100831, end: 20100914

REACTIONS (4)
  - BLOOD AMYLASE INCREASED [None]
  - HEPATIC ENZYME INCREASED [None]
  - NEUROPATHY PERIPHERAL [None]
  - THROMBOCYTOPENIA [None]
